FAERS Safety Report 10021956 (Version 1)
Quarter: 2014Q1

REPORT INFORMATION
  Report Type: Spontaneous
  Country: US (occurrence: None)
  Receive Date: 20140318
  Receipt Date: 20140318
  Transmission Date: 20141002
  Serious: No
  Sender: FDA-Public Use
  Company Number: None

PATIENT
  Age: 58 Year
  Sex: Female
  Weight: 61.24 kg

DRUGS (1)
  1. CYMBALTA [Suspect]
     Indication: NEUROPATHY PERIPHERAL
     Dosage: ONCE DAILY TAKEN BY MOUTH
     Dates: start: 20140314

REACTIONS (7)
  - Nausea [None]
  - Vomiting [None]
  - Dysuria [None]
  - Headache [None]
  - Dizziness postural [None]
  - Fatigue [None]
  - Poor quality sleep [None]
